FAERS Safety Report 6409551-1 (Version None)
Quarter: 2009Q4

REPORT INFORMATION
  Report Type: 
  Country: None (occurrence: None)
  Receive Date: 20091020
  Receipt Date: 20091020
  Transmission Date: 20100525
  Serious: Yes (Disabling)
  Sender: FDA-Public Use
  Company Number: None

PATIENT
  Age: 74 Year
  Sex: Male
  Weight: 67.1324 kg

DRUGS (1)
  1. METOCLOPRAMIDE [Suspect]
     Indication: NAUSEA
     Dosage: 5MGM TID PO
     Route: 048
     Dates: start: 20090101, end: 20090806

REACTIONS (4)
  - ASTHENIA [None]
  - DYSPHAGIA [None]
  - GAIT DISTURBANCE [None]
  - TARDIVE DYSKINESIA [None]
